FAERS Safety Report 10951337 (Version 23)
Quarter: 2016Q2

REPORT INFORMATION
  Report Type: Report from Study
  Country: CO (occurrence: CO)
  Receive Date: 20150324
  Receipt Date: 20160616
  Transmission Date: 20160815
  Serious: Yes (Hospitalization, Other)
  Sender: FDA-Public Use
  Company Number: PHHY2015CO031779

PATIENT
  Age: 62 Year
  Sex: Female
  Weight: 55 kg

DRUGS (8)
  1. OMEPRAZOLE. [Concomitant]
     Active Substance: OMEPRAZOLE
     Indication: GASTRITIS
     Dosage: UNK UNK, QD
     Route: 065
  2. ACETAMINOPHEN. [Concomitant]
     Active Substance: ACETAMINOPHEN
     Indication: PAIN
     Dosage: UNK UNK, TID
     Route: 065
  3. DULCOLAX NOS [Concomitant]
     Active Substance: BISACODYL OR DOCUSATE SODIUM
     Indication: CONSTIPATION
     Dosage: UNK OT, QD
     Route: 065
  4. ENALAPRIL [Suspect]
     Active Substance: ENALAPRIL
     Indication: HYPERTENSION
     Dosage: 20 MG, UNK
     Route: 065
  5. EXEMESTANE. [Concomitant]
     Active Substance: EXEMESTANE
     Indication: BREAST CANCER
     Dosage: 25 MG, QD
     Route: 065
  6. LOSARTAN. [Concomitant]
     Active Substance: LOSARTAN
     Indication: PRODUCT USED FOR UNKNOWN INDICATION
     Dosage: 20 MG, QD
     Route: 065
  7. AFINITOR [Interacting]
     Active Substance: EVEROLIMUS
     Indication: BREAST CANCER METASTATIC
     Dosage: 10 MG, QD
     Route: 048
     Dates: start: 20141218
  8. AFINITOR [Interacting]
     Active Substance: EVEROLIMUS
     Indication: LUNG NEOPLASM MALIGNANT

REACTIONS (39)
  - Malaise [Unknown]
  - Asthenia [Unknown]
  - Brain neoplasm [Unknown]
  - Tongue ulceration [Unknown]
  - Oral disorder [Unknown]
  - Procedural complication [Unknown]
  - Choking [Unknown]
  - Swollen tongue [Unknown]
  - Inflammation [Unknown]
  - Discomfort [Unknown]
  - Apathy [Unknown]
  - Bone pain [Unknown]
  - Abnormal behaviour [Unknown]
  - Mouth ulceration [Recovering/Resolving]
  - Weight decreased [Unknown]
  - Abdominal pain [Unknown]
  - Oral mucosal blistering [Unknown]
  - Diet refusal [Unknown]
  - Decreased appetite [Unknown]
  - Anaemia [Unknown]
  - Product use issue [Unknown]
  - Dehydration [Unknown]
  - Insomnia [Unknown]
  - Peripheral swelling [Unknown]
  - Headache [Unknown]
  - Kidney infection [Unknown]
  - Metastases to liver [Unknown]
  - Breast cancer recurrent [Recovered/Resolved]
  - Drug interaction [Unknown]
  - Asphyxia [Recovered/Resolved]
  - Pain in extremity [Unknown]
  - Cystitis [Unknown]
  - Abdominal pain upper [Unknown]
  - Gastroenteritis [Recovered/Resolved]
  - Diarrhoea [Unknown]
  - Obstructive airways disorder [Recovering/Resolving]
  - Depression [Unknown]
  - Drug intolerance [Unknown]
  - Immunosuppression [Unknown]

NARRATIVE: CASE EVENT DATE: 20160412
